FAERS Safety Report 8594809-0 (Version None)
Quarter: 2012Q3

REPORT INFORMATION
  Report Type: 
  Country: None (occurrence: None)
  Receive Date: 20120815
  Receipt Date: 20120807
  Transmission Date: 20120928
  Serious: Yes (Other)
  Sender: FDA-Public Use
  Company Number: US-BAYER-2012-025644

PATIENT
  Age: 24 Year
  Sex: Female
  Weight: 70.295 kg

DRUGS (11)
  1. YAZ [Suspect]
     Dosage: UNK
     Dates: start: 20080201, end: 20100501
  2. DICYCLOMINE [Concomitant]
     Dosage: 10 MG, UNK
     Route: 048
     Dates: start: 20100322
  3. DARVOCET [Concomitant]
     Dosage: UNK UNK, PRN
  4. FLAGYL [Concomitant]
     Dosage: UNK UNK, PRN
     Dates: start: 20020101
  5. AMOXICILLIN [Concomitant]
     Dosage: UNK UNK, PRN
     Dates: start: 20020101
  6. ORTHO CYCLEN-28 [Concomitant]
  7. IBUPROFEN [Concomitant]
     Dosage: UNK UNK, PRN
     Dates: start: 20020101
  8. ASCORBIC ACID [Concomitant]
     Dosage: DAILY
  9. YAZ [Suspect]
     Indication: PREMENSTRUAL SYNDROME
     Dosage: UNK
     Dates: start: 20080201, end: 20100501
  10. LOESTRIN 1.5/30 [Concomitant]
     Dosage: UNK UNK, QD
  11. PROVENTIL [Concomitant]
     Indication: ASTHMA
     Dosage: UNK UNK, PRN
     Dates: start: 20020101

REACTIONS (8)
  - INJURY [None]
  - EMOTIONAL DISTRESS [None]
  - PAIN [None]
  - GENERAL PHYSICAL HEALTH DETERIORATION [None]
  - GASTRIC DISORDER [None]
  - ANXIETY [None]
  - BILIARY DYSKINESIA [None]
  - GALLBLADDER NON-FUNCTIONING [None]
